FAERS Safety Report 16709862 (Version 1)
Quarter: 2019Q4

REPORT INFORMATION
  Report Type: Spontaneous
  Country: US (occurrence: US)
  Receive Date: 20190815
  Receipt Date: 20190815
  Transmission Date: 20200122
  Serious: Yes (Other)
  Sender: FDA-Public Use
  Company Number: None

PATIENT
  Age: 37 Year
  Sex: Female
  Weight: 112.5 kg

DRUGS (1)
  1. GENERIC BUPRENORPHINE/NALOXONE [Suspect]
     Active Substance: BUPRENORPHINE HYDROCHLORIDE\NALOXONE HYDROCHLORIDE
     Indication: DRUG USE DISORDER
     Route: 060
     Dates: start: 20180718, end: 20180723

REACTIONS (8)
  - Dyspnoea [None]
  - Drug ineffective [None]
  - Inability to afford medication [None]
  - Drug intolerance [None]
  - Swelling [None]
  - Product substitution issue [None]
  - Insurance issue [None]
  - Rash [None]

NARRATIVE: CASE EVENT DATE: 20180712
